FAERS Safety Report 8428982-1 (Version None)
Quarter: 2012Q2

REPORT INFORMATION
  Report Type: 
  Country: None (occurrence: None)
  Receive Date: 20120612
  Receipt Date: 20120531
  Transmission Date: 20120825
  Serious: Yes (Hospitalization, Other)
  Sender: FDA-Public Use
  Company Number: US-ELI_LILLY_AND_COMPANY-US201206000678

PATIENT
  Sex: Female

DRUGS (4)
  1. SYNTHROID [Concomitant]
     Dosage: UNK
  2. FORTEO [Suspect]
     Indication: OSTEOPOROSIS
     Dosage: 20 UG, QD
     Dates: start: 20111001, end: 20111201
  3. REMERON [Concomitant]
     Dosage: UNK
  4. TRAZODONE HCL [Concomitant]
     Indication: MIGRAINE
     Dosage: UNK

REACTIONS (3)
  - PHARYNGEAL DISORDER [None]
  - SURGERY [None]
  - NECK SURGERY [None]
